FAERS Safety Report 5190513-X (Version None)
Quarter: 2006Q4

REPORT INFORMATION
  Report Type: 
  Country: None (occurrence: None)
  Receive Date: 20061222
  Receipt Date: 20061213
  Transmission Date: 20070319
  Serious: Yes (Other)
  Sender: FDA-Public Use
  Company Number: CH-GLAXOSMITHKLINE-B0451296A

PATIENT
  Age: 53 Year
  Sex: Male
  Weight: 52 kg

DRUGS (6)
  1. RANITIDINE [Suspect]
     Route: 065
  2. LANSOPRAZOLE [Suspect]
     Route: 065
  3. PROPYPHENAZONE [Suspect]
     Route: 065
  4. DROFENINE [Suspect]
     Route: 065
  5. OXAZEPAM [Suspect]
     Route: 065
  6. BROMAZEPAM [Suspect]
     Route: 065

REACTIONS (3)
  - ACCIDENTAL OVERDOSE [None]
  - DRUG DEPENDENCE [None]
  - DRUG TOXICITY [None]
